FAERS Safety Report 21701759 (Version 2)
Quarter: 2023Q1

REPORT INFORMATION
  Report Type: Spontaneous
  Country: CA (occurrence: CA)
  Receive Date: 20221208
  Receipt Date: 20230123
  Transmission Date: 20230417
  Serious: Yes (Life-Threatening)
  Sender: FDA-Public Use
  Company Number: CA-TEVA-2022-CA-2832654

PATIENT
  Age: 18 Month
  Sex: Male

DRUGS (32)
  1. ACYCLOVIR [Suspect]
     Active Substance: ACYCLOVIR
     Indication: Herpes simplex
     Route: 065
  2. ACYCLOVIR [Suspect]
     Active Substance: ACYCLOVIR
     Indication: Adenovirus infection
  3. ACYCLOVIR [Suspect]
     Active Substance: ACYCLOVIR
     Indication: Cytomegalovirus viraemia
  4. ACYCLOVIR [Suspect]
     Active Substance: ACYCLOVIR
     Indication: Epstein-Barr virus infection
  5. ACYCLOVIR [Suspect]
     Active Substance: ACYCLOVIR
     Indication: Human bocavirus infection
  6. ACYCLOVIR [Suspect]
     Active Substance: ACYCLOVIR
     Indication: Systemic candida
  7. ACYCLOVIR [Suspect]
     Active Substance: ACYCLOVIR
     Indication: Rhinovirus infection
  8. GANCICLOVIR [Suspect]
     Active Substance: GANCICLOVIR
     Indication: Herpes simplex
     Route: 065
  9. GANCICLOVIR [Suspect]
     Active Substance: GANCICLOVIR
     Indication: Adenovirus infection
  10. GANCICLOVIR [Suspect]
     Active Substance: GANCICLOVIR
     Indication: Cytomegalovirus viraemia
  11. GANCICLOVIR [Suspect]
     Active Substance: GANCICLOVIR
     Indication: Epstein-Barr virus infection
  12. GANCICLOVIR [Suspect]
     Active Substance: GANCICLOVIR
     Indication: Human bocavirus infection
  13. GANCICLOVIR [Suspect]
     Active Substance: GANCICLOVIR
     Indication: Systemic candida
  14. GANCICLOVIR [Suspect]
     Active Substance: GANCICLOVIR
     Indication: Rhinovirus infection
  15. CIDOFOVIR [Suspect]
     Active Substance: CIDOFOVIR
     Indication: Herpes simplex
     Dosage: CIDOFOVIR: 3 %
     Route: 061
  16. CIDOFOVIR [Suspect]
     Active Substance: CIDOFOVIR
     Indication: Adenovirus infection
  17. CIDOFOVIR [Suspect]
     Active Substance: CIDOFOVIR
     Indication: Cytomegalovirus viraemia
  18. CIDOFOVIR [Suspect]
     Active Substance: CIDOFOVIR
     Indication: Epstein-Barr virus infection
  19. CIDOFOVIR [Suspect]
     Active Substance: CIDOFOVIR
     Indication: Human bocavirus infection
  20. CIDOFOVIR [Suspect]
     Active Substance: CIDOFOVIR
     Indication: Systemic candida
  21. CIDOFOVIR [Suspect]
     Active Substance: CIDOFOVIR
     Indication: Rhinovirus infection
  22. FOSCARNET [Suspect]
     Active Substance: FOSCARNET
     Indication: Herpes simplex
     Route: 065
  23. FOSCARNET [Suspect]
     Active Substance: FOSCARNET
     Indication: Adenovirus infection
  24. FOSCARNET [Suspect]
     Active Substance: FOSCARNET
     Indication: Cytomegalovirus viraemia
  25. FOSCARNET [Suspect]
     Active Substance: FOSCARNET
     Indication: Epstein-Barr virus infection
  26. FOSCARNET [Suspect]
     Active Substance: FOSCARNET
     Indication: Human bocavirus infection
  27. FOSCARNET [Suspect]
     Active Substance: FOSCARNET
     Indication: Systemic candida
  28. FOSCARNET [Suspect]
     Active Substance: FOSCARNET
     Indication: Rhinovirus infection
  29. DEXAMETHASONE [Concomitant]
     Active Substance: DEXAMETHASONE
     Indication: Haemophagocytic lymphohistiocytosis
     Route: 065
  30. RITUXIMAB [Concomitant]
     Active Substance: RITUXIMAB
     Indication: Haemophagocytic lymphohistiocytosis
     Route: 065
  31. HUMAN IMMUNOGLOBULIN G [Concomitant]
     Active Substance: HUMAN IMMUNOGLOBULIN G
     Indication: Haemophagocytic lymphohistiocytosis
     Route: 042
  32. ETOPOSIDE [Concomitant]
     Active Substance: ETOPOSIDE
     Indication: Haemophagocytic lymphohistiocytosis
     Route: 065

REACTIONS (1)
  - Drug ineffective [Unknown]
